FAERS Safety Report 7177301-X (Version None)
Quarter: 2010Q4

REPORT INFORMATION
  Report Type: 
  Country: None (occurrence: None)
  Receive Date: 20101123
  Receipt Date: 20100728
  Transmission Date: 20110411
  Serious: No
  Sender: FDA-Public Use
  Company Number: 016772

PATIENT
  Sex: Male

DRUGS (1)
  1. CIMZIA [Suspect]
     Dosage: 400 MG 1X/14 DAYS SUBCUTANEOUS
     Route: 058
     Dates: start: 20100301

REACTIONS (3)
  - HEADACHE [None]
  - PARAESTHESIA [None]
  - VISION BLURRED [None]
